FAERS Safety Report 5305301-0 (Version None)
Quarter: 2007Q2

REPORT INFORMATION
  Report Type: 
  Country: None (occurrence: None)
  Receive Date: 20070424
  Receipt Date: 20070417
  Transmission Date: 20071010
  Serious: Yes (Other)
  Sender: FDA-Public Use
  Company Number: PHEH2007US05524

PATIENT
  Age: 46 Year
  Sex: Female

DRUGS (2)
  1. ZELNORM [Suspect]
     Indication: IRRITABLE BOWEL SYNDROME
     Dosage: UNK, QD
     Route: 048
     Dates: start: 20040101, end: 20050101
  2. ZELNORM [Suspect]
     Dosage: UNK, QD
     Route: 048
     Dates: start: 20070201, end: 20070315

REACTIONS (1)
  - RECTAL HAEMORRHAGE [None]
